FAERS Safety Report 15888753 (Version 1)
Quarter: 2019Q1

REPORT INFORMATION
  Report Type: Spontaneous
  Country: US (occurrence: US)
  Receive Date: 20190130
  Receipt Date: 20190130
  Transmission Date: 20190417
  Serious: No
  Sender: FDA-Public Use
  Company Number: US-BAUSCH-BL-2019-001722

PATIENT
  Age: 79 Year
  Sex: Male
  Weight: 90.8 kg

DRUGS (2)
  1. ATIVAN [Suspect]
     Active Substance: LORAZEPAM
     Indication: ANXIETY
     Dosage: 3 TABLETS SPACED OUT THROUGHOUT THE DAY AND 2 TABLETS IN THE EVENING BEFORE BED
     Route: 048
     Dates: start: 201809, end: 201901
  2. ATIVAN [Suspect]
     Active Substance: LORAZEPAM
     Indication: DEPRESSION
     Dosage: 1/2 TABLET IN THE MORNING, 1/2 TABLET IN THE AFTERNOON, AND 1/2 TABLET IN THE EVENING BEFORE BED
     Route: 048
     Dates: start: 201901

REACTIONS (4)
  - Insomnia [Recovering/Resolving]
  - Depression [Recovering/Resolving]
  - Intentional product use issue [Not Recovered/Not Resolved]
  - Nervousness [Recovering/Resolving]

NARRATIVE: CASE EVENT DATE: 201901
